FAERS Safety Report 24623746 (Version 1)
Quarter: 2024Q4

REPORT INFORMATION
  Report Type: Spontaneous
  Country: US (occurrence: US)
  Receive Date: 20241115
  Receipt Date: 20241115
  Transmission Date: 20250115
  Serious: No
  Sender: ALEXION PHARMACEUTICALS
  Company Number: US-AstraZeneca-CH-00724039A

PATIENT

DRUGS (4)
  1. BYDUREON BCISE [Suspect]
     Active Substance: EXENATIDE
     Dosage: UNK
     Route: 065
  2. BYDUREON BCISE [Suspect]
     Active Substance: EXENATIDE
     Dosage: UNK
  3. BYDUREON BCISE [Suspect]
     Active Substance: EXENATIDE
     Dosage: UNK
     Route: 065
  4. BYDUREON BCISE [Suspect]
     Active Substance: EXENATIDE
     Dosage: UNK

REACTIONS (3)
  - Injection site oedema [Unknown]
  - Injection site erythema [Unknown]
  - Product dose omission issue [Unknown]
